FAERS Safety Report 7496799-0 (Version None)
Quarter: 2011Q2

REPORT INFORMATION
  Report Type: 
  Country: None (occurrence: None)
  Receive Date: 20110523
  Receipt Date: 20110509
  Transmission Date: 20111010
  Serious: Yes (Other)
  Sender: FDA-Public Use
  Company Number: GB-JNJFOC-20110102827

PATIENT
  Sex: Male

DRUGS (4)
  1. REMICADE [Suspect]
     Indication: CROHN'S DISEASE
     Dosage: 2 DOSES ONLY
     Route: 042
     Dates: end: 20110401
  2. REMICADE [Suspect]
     Dosage: 0, 2, 6 WEEK REGIME
     Route: 042
     Dates: start: 20101221
  3. AZATHIOPRINE [Concomitant]
  4. VIT B [Concomitant]

REACTIONS (9)
  - LIP SWELLING [None]
  - PHARYNGEAL OEDEMA [None]
  - RASH [None]
  - VOMITING [None]
  - DRY EYE [None]
  - FLUSHING [None]
  - PYREXIA [None]
  - NAUSEA [None]
  - DRY MOUTH [None]
